FAERS Safety Report 4358481-8 (Version None)
Quarter: 2004Q2

REPORT INFORMATION
  Report Type: 
  Country: None (occurrence: None)
  Receive Date: 20040514
  Receipt Date: 20040511
  Transmission Date: 20050107
  Serious: Yes (Life-Threatening, Hospitalization, Other)
  Sender: FDA-Public Use
  Company Number: US-BRISTOL-MYERS SQUIBB COMPANY-12583621

PATIENT
  Age: 28 Year
  Sex: Male
  Weight: 81 kg

DRUGS (5)
  1. STAVUDINE [Suspect]
     Indication: HIV INFECTION
     Dosage: TEMPORARILY ON HOLD FROM 24-APR-2004
     Route: 048
     Dates: start: 20001113
  2. KALETRA [Suspect]
     Indication: HIV INFECTION
     Dosage: TEMPORARILY ON HOLD FROM 24-APR-2004
     Route: 048
     Dates: start: 20001113
  3. COVIRACIL [Suspect]
     Indication: HIV INFECTION
     Dosage: TEMPORARILY ON HOLD FROM 24-APR-2004
     Route: 048
     Dates: start: 20001113
  4. LAMICTAL [Suspect]
     Dosage: ON HOLD AS OF 25-APR-2004
     Dates: start: 20021021
  5. DEPAKOTE [Concomitant]
     Dosage: ON HOLD AS OF 25-APR-2004
     Dates: start: 20001201

REACTIONS (2)
  - ASPARTATE AMINOTRANSFERASE INCREASED [None]
  - BLOOD CREATINE PHOSPHOKINASE INCREASED [None]
